FAERS Safety Report 8792324 (Version 2)
Quarter: 2012Q4

REPORT INFORMATION
  Report Type: 
  Country: US (occurrence: US)
  Receive Date: 20120918
  Receipt Date: 20121005
  Transmission Date: 20130627
  Serious: No
  Sender: FDA-Public Use
  Company Number: US-PFIZER INC-2012227883

PATIENT
  Age: 67 Year
  Sex: Male

DRUGS (3)
  1. VIAGRA [Suspect]
     Dosage: 100 mg, as needed
     Route: 048
  2. VIAGRA [Suspect]
     Dosage: 300 mg, UNK
     Route: 048
     Dates: start: 201208
  3. LOSARTAN [Concomitant]
     Indication: BLOOD PRESSURE ABNORMAL
     Dosage: 100 mg, daily

REACTIONS (1)
  - Drug ineffective [Unknown]
